FAERS Safety Report 12784791 (Version 1)
Quarter: 2016Q3

REPORT INFORMATION
  Report Type: Spontaneous
  Country: JP (occurrence: JP)
  Receive Date: 20160927
  Receipt Date: 20160927
  Transmission Date: 20161109
  Serious: Yes (Other)
  Sender: FDA-Public Use
  Company Number: JP-JNJFOC-20160907263

PATIENT

DRUGS (10)
  1. MAGNESIUM OXIDE. [Concomitant]
     Active Substance: MAGNESIUM OXIDE
     Route: 048
  2. MYSLEE [Concomitant]
     Active Substance: ZOLPIDEM TARTRATE
     Route: 048
  3. MUCOSTA [Concomitant]
     Active Substance: REBAMIPIDE
     Route: 048
  4. TAKEPRON [Concomitant]
     Active Substance: LANSOPRAZOLE
     Route: 048
  5. EDIROL [Concomitant]
     Active Substance: ELDECALCITOL
     Route: 048
  6. ASPIRIN. [Concomitant]
     Active Substance: ASPIRIN
     Route: 048
  7. TRAMCET [Suspect]
     Active Substance: ACETAMINOPHEN\TRAMADOL
     Indication: PRODUCT USED FOR UNKNOWN INDICATION
     Route: 048
  8. CRESTOR [Concomitant]
     Active Substance: ROSUVASTATIN CALCIUM
     Route: 048
  9. ARTIST [Concomitant]
     Active Substance: CARVEDILOL
     Route: 048
  10. ITOROL [Concomitant]
     Active Substance: ISOSORBIDE MONONITRATE
     Route: 048

REACTIONS (2)
  - Gamma-glutamyltransferase increased [Unknown]
  - Blood alkaline phosphatase increased [Unknown]

NARRATIVE: CASE EVENT DATE: 20160809
